FAERS Safety Report 23063095 (Version 1)
Quarter: 2023Q4

REPORT INFORMATION
  Report Type: Spontaneous
  Country: US (occurrence: None)
  Receive Date: 20231012
  Receipt Date: 20231012
  Transmission Date: 20240109
  Serious: No
  Sender: FDA-Public Use
  Company Number: None

PATIENT
  Age: 59 Year
  Sex: Female
  Weight: 85.28 kg

DRUGS (1)
  1. REMICADE [Suspect]
     Active Substance: INFLIXIMAB
     Route: 042

REACTIONS (8)
  - Feeling abnormal [None]
  - Hypotension [None]
  - Nausea [None]
  - Hyperhidrosis [None]
  - Palpitations [None]
  - Infusion related reaction [None]
  - Eye swelling [None]
  - Eye pruritus [None]

NARRATIVE: CASE EVENT DATE: 20231011
